FAERS Safety Report 4881680-3 (Version None)
Quarter: 2005Q4

REPORT INFORMATION
  Report Type: 
  Country: None (occurrence: None)
  Receive Date: 20051201
  Receipt Date: 20050913
  Transmission Date: 20060501
  Serious: Yes (Life-Threatening, Other)
  Sender: FDA-Public Use
  Company Number: 246933

PATIENT
  Age: 15 Year
  Sex: Female
  Weight: 73 kg

DRUGS (1)
  1. NOVOLOG MIX 70/30 [Suspect]
     Indication: DIABETES MELLITUS INSULIN-DEPENDENT
     Dosage: 70 IU, QD, SUBCUTANEOUS
     Route: 058
     Dates: start: 20040727, end: 20050907

REACTIONS (2)
  - ANAPHYLACTIC REACTION [None]
  - PHARYNGOLARYNGEAL PAIN [None]
